FAERS Safety Report 5361740-3 (Version None)
Quarter: 2007Q2

REPORT INFORMATION
  Report Type: 
  Country: None (occurrence: None)
  Receive Date: 20070615
  Receipt Date: 20070615
  Transmission Date: 20071010
  Serious: Yes (Hospitalization)
  Sender: FDA-Public Use
  Company Number: None

PATIENT
  Sex: Female

DRUGS (8)
  1. CETUXIMAB [Suspect]
     Indication: PANCREATIC CARCINOMA
     Dosage: 580MG IV
     Route: 042
     Dates: start: 20070522
  2. GEMCITABINE [Suspect]
     Indication: PANCREATIC CARCINOMA
     Dosage: 1450MG IV
     Route: 042
     Dates: start: 20070522
  3. OXALIPLATIN [Suspect]
     Indication: PANCREATIC CARCINOMA
     Dosage: 145MG IV
     Route: 042
     Dates: start: 20070523
  4. PROTONIX [Concomitant]
  5. LORAZEPAM [Concomitant]
  6. FOLIC ACID [Concomitant]
  7. CALCIUM CHLORIDE [Concomitant]
  8. DILAUDID [Concomitant]

REACTIONS (2)
  - NAUSEA [None]
  - VOMITING [None]
